FAERS Safety Report 8534679-X (Version None)
Quarter: 2012Q3

REPORT INFORMATION
  Report Type: 
  Country: None (occurrence: None)
  Receive Date: 20120724
  Receipt Date: 20120717
  Transmission Date: 20120928
  Serious: Yes (Hospitalization)
  Sender: FDA-Public Use
  Company Number: CA-GLAXOSMITHKLINE-A0973117A

PATIENT
  Sex: Female
  Weight: 65.9 kg

DRUGS (1)
  1. PROMACTA [Suspect]
     Indication: IDIOPATHIC THROMBOCYTOPENIC PURPURA
     Dosage: 50MG PER DAY
     Route: 048
     Dates: start: 20120216, end: 20120321

REACTIONS (9)
  - VISUAL IMPAIRMENT [None]
  - CONFUSIONAL STATE [None]
  - AMNESIA [None]
  - HEADACHE [None]
  - TREMOR [None]
  - NASOPHARYNGITIS [None]
  - WITHDRAWAL SYNDROME [None]
  - TOOTHACHE [None]
  - NAUSEA [None]
